FAERS Safety Report 7198920-0 (Version None)
Quarter: 2010Q4

REPORT INFORMATION
  Report Type: 
  Country: None (occurrence: None)
  Receive Date: 20101227
  Receipt Date: 20101217
  Transmission Date: 20110411
  Serious: Yes (Hospitalization)
  Sender: FDA-Public Use
  Company Number: FR-AMGEN-FRASP2010011211

PATIENT

DRUGS (5)
  1. ENBREL [Suspect]
     Indication: PSORIASIS
     Dosage: UNK
     Route: 042
     Dates: start: 20060101, end: 20100101
  2. HUMIRA [Suspect]
     Indication: PSORIASIS
     Dosage: UNK
     Route: 042
     Dates: start: 20100101, end: 20100901
  3. APRANAX [Concomitant]
     Dosage: 500 MG
  4. ATACAND [Concomitant]
     Dosage: 8 MG
  5. NEXIUM [Concomitant]
     Dosage: 40 MG

REACTIONS (1)
  - MIGRAINE [None]
